FAERS Safety Report 7522673-7 (Version None)
Quarter: 2011Q2

REPORT INFORMATION
  Report Type: 
  Country: None (occurrence: None)
  Receive Date: 20110603
  Receipt Date: 20110524
  Transmission Date: 20111010
  Serious: Yes (Death, Hospitalization)
  Sender: FDA-Public Use
  Company Number: US-ACTELION-A-NJ2010-42961

PATIENT

DRUGS (1)
  1. TRACLEER [Suspect]
     Indication: PULMONARY ARTERIAL HYPERTENSION
     Dosage: 125 MG, BID
     Route: 048
     Dates: start: 20100728

REACTIONS (5)
  - BODY TEMPERATURE INCREASED [None]
  - DYSPNOEA [None]
  - HEART RATE INCREASED [None]
  - DISORIENTATION [None]
  - DEATH [None]
